FAERS Safety Report 6103123-4 (Version None)
Quarter: 2009Q1

REPORT INFORMATION
  Report Type: 
  Country: None (occurrence: None)
  Receive Date: 20090227
  Receipt Date: 20090220
  Transmission Date: 20090719
  Serious: Yes (Hospitalization)
  Sender: FDA-Public Use
  Company Number: DSA_33199_2009

PATIENT
  Sex: Male

DRUGS (14)
  1. LORAZEPAM [Suspect]
     Indication: DRUG USE FOR UNKNOWN INDICATION
     Dosage: (4 MG QD ORAL), (2 MG QD ORAL)
     Route: 048
     Dates: start: 20070101, end: 20080116
  2. LORAZEPAM [Suspect]
     Indication: DRUG USE FOR UNKNOWN INDICATION
     Dosage: (4 MG QD ORAL), (2 MG QD ORAL)
     Route: 048
     Dates: start: 20080117
  3. AKINETON [Suspect]
     Indication: DRUG USE FOR UNKNOWN INDICATION
     Dosage: (4 MG QD ORAL), (2 MG QD ORAL)
     Route: 048
     Dates: start: 19800101, end: 20080116
  4. AKINETON [Suspect]
     Indication: DRUG USE FOR UNKNOWN INDICATION
     Dosage: (4 MG QD ORAL), (2 MG QD ORAL)
     Route: 048
     Dates: start: 20080117
  5. ATROVENT [Suspect]
     Indication: CHRONIC OBSTRUCTIVE PULMONARY DISEASE
     Dosage: (DF)
     Dates: start: 20040101
  6. PROMAZINE HYDROCHLORIDE [Suspect]
     Indication: DRUG USE FOR UNKNOWN INDICATION
     Dosage: (75 MG QD ORAL), (100 MG QD ORAL), (200 MG QD ORAL)
     Route: 048
     Dates: start: 20070101, end: 20080116
  7. PROMAZINE HYDROCHLORIDE [Suspect]
     Indication: DRUG USE FOR UNKNOWN INDICATION
     Dosage: (75 MG QD ORAL), (100 MG QD ORAL), (200 MG QD ORAL)
     Route: 048
     Dates: start: 20080117, end: 20080126
  8. PROMAZINE HYDROCHLORIDE [Suspect]
     Indication: DRUG USE FOR UNKNOWN INDICATION
     Dosage: (75 MG QD ORAL), (100 MG QD ORAL), (200 MG QD ORAL)
     Route: 048
     Dates: start: 20080127
  9. RISPERIDONE [Suspect]
     Indication: DRUG USE FOR UNKNOWN INDICATION
     Dosage: (2 MG QD ORAL), (6 MG QD ORAL), (3 MG QD ORAL)
     Route: 048
     Dates: start: 20020101, end: 20080116
  10. RISPERIDONE [Suspect]
     Indication: DRUG USE FOR UNKNOWN INDICATION
     Dosage: (2 MG QD ORAL), (6 MG QD ORAL), (3 MG QD ORAL)
     Route: 048
     Dates: start: 20080117, end: 20080122
  11. RISPERIDONE [Suspect]
     Indication: DRUG USE FOR UNKNOWN INDICATION
     Dosage: (2 MG QD ORAL), (6 MG QD ORAL), (3 MG QD ORAL)
     Route: 048
     Dates: start: 20080123
  12. SERESTA (SERESTA - OXAZEPAM) (NOT SPECIFIED) [Suspect]
     Indication: DRUG USE FOR UNKNOWN INDICATION
     Dosage: (30 MG QD ORAL)
     Route: 048
     Dates: start: 20060101
  13. VENTOLIN [Concomitant]
  14. INSULIN [Concomitant]

REACTIONS (12)
  - ANAEMIA [None]
  - BASAL GANGLION DEGENERATION [None]
  - BLOOD GLUCOSE FLUCTUATION [None]
  - BUNDLE BRANCH BLOCK LEFT [None]
  - CONDITION AGGRAVATED [None]
  - DIABETIC NEUROPATHY [None]
  - DRUG INTERACTION [None]
  - ENCEPHALOPATHY [None]
  - NEOPLASM MALIGNANT [None]
  - POLYNEUROPATHY ALCOHOLIC [None]
  - TYPE 2 DIABETES MELLITUS [None]
  - WEIGHT DECREASED [None]
